FAERS Safety Report 11360549 (Version 3)
Quarter: 2015Q3

REPORT INFORMATION
  Report Type: Report from Study
  Country: US (occurrence: US)
  Receive Date: 20150810
  Receipt Date: 20150908
  Transmission Date: 20151125
  Serious: Yes (Other)
  Sender: FDA-Public Use
  Company Number: PHEH2015US002902

PATIENT
  Age: 61 Year
  Sex: Male

DRUGS (5)
  1. EXTAVIA [Suspect]
     Active Substance: INTERFERON BETA-1B
     Indication: MULTIPLE SCLEROSIS
     Dosage: 0.0625 MG, QOD (0.25 ML) 1-2 WEEKS
     Route: 058
     Dates: start: 20150205
  2. EXTAVIA [Suspect]
     Active Substance: INTERFERON BETA-1B
     Dosage: 0.187 MG, QOD (0.75 ML) 5-6 WEEKS
     Route: 058
  3. EXTAVIA [Suspect]
     Active Substance: INTERFERON BETA-1B
     Dosage: 0.125 MG, QOD (0.5 ML) 3-4 WEEKS
     Route: 058
  4. TYLENOL [Concomitant]
     Active Substance: ACETAMINOPHEN
     Indication: PRODUCT USED FOR UNKNOWN INDICATION
     Dosage: 2 DF, UNK (500 MG)
     Route: 065
  5. EXTAVIA [Suspect]
     Active Substance: INTERFERON BETA-1B
     Dosage: 0.25 MG, QOD (1 ML) 7+ WEEKS
     Route: 058

REACTIONS (10)
  - Blood glucose increased [Unknown]
  - Chest pain [Unknown]
  - Influenza like illness [Not Recovered/Not Resolved]
  - Headache [Not Recovered/Not Resolved]
  - Fatigue [Unknown]
  - Hepatic enzyme increased [Unknown]
  - Depression [Unknown]
  - Malaise [Unknown]
  - Multiple sclerosis [Unknown]
  - Nausea [Unknown]

NARRATIVE: CASE EVENT DATE: 20150205
